FAERS Safety Report 7388609-7 (Version None)
Quarter: 2011Q2

REPORT INFORMATION
  Report Type: 
  Country: None (occurrence: None)
  Receive Date: 20110401
  Receipt Date: 20110324
  Transmission Date: 20111010
  Serious: Yes (Other)
  Sender: FDA-Public Use
  Company Number: FR-PFIZER INC-2011066664

PATIENT
  Age: 28 Year
  Sex: Female

DRUGS (1)
  1. NORDETTE-21 [Suspect]
     Dosage: 1 DF, 1X/DAY
     Route: 048
     Dates: start: 20090801, end: 20100314

REACTIONS (2)
  - COMPLEMENT FACTOR C1 DECREASED [None]
  - LIP OEDEMA [None]
